FAERS Safety Report 5138452-4 (Version None)
Quarter: 2006Q4

REPORT INFORMATION
  Report Type: 
  Country: None (occurrence: None)
  Receive Date: 20061030
  Receipt Date: 20060227
  Transmission Date: 20070319
  Serious: No
  Sender: FDA-Public Use
  Company Number: US-GLAXOSMITHKLINE-A0595337A

PATIENT
  Age: 80 Year
  Sex: Male

DRUGS (9)
  1. ADVAIR HFA [Suspect]
     Indication: CHRONIC OBSTRUCTIVE PULMONARY DISEASE
     Dosage: 1PUFF TWICE PER DAY
     Route: 055
     Dates: start: 20030101
  2. TERAZOSIN HCL [Concomitant]
  3. PREVACID [Concomitant]
  4. FLONASE [Concomitant]
  5. COMBIVENT [Concomitant]
  6. ALLEGRA [Concomitant]
  7. TYLENOL [Concomitant]
  8. VITAMIN E [Concomitant]
  9. ASCORBIC ACID [Concomitant]

REACTIONS (1)
  - NAUSEA [None]
